FAERS Safety Report 9990128 (Version 1)
Quarter: 2014Q1

REPORT INFORMATION
  Report Type: Spontaneous
  Country: US (occurrence: None)
  Receive Date: 20140123
  Receipt Date: 20140123
  Transmission Date: 20141002
  Serious: Yes (Hospitalization)
  Sender: FDA-Public Use
  Company Number: UTC-036835

PATIENT
  Age: 33 Year
  Sex: Female

DRUGS (2)
  1. REMODULIN (5 MILLIGRAM/ MILLILITERS, INJECTION FOR INFUSION) (TREPROSTINIL SODIUM) [Suspect]
     Indication: PULMONARY ARTERIAL HYPERTENSION
     Dosage: 123.84 UG/KG (0.086 UG/KG, 1 IN 1 MIN)
     Route: 041
     Dates: start: 20100820
  2. COUMADIN (WARFARIN SODIUM) [Concomitant]

REACTIONS (1)
  - Oedema [None]
